FAERS Safety Report 16608287 (Version 1)
Quarter: 2019Q3

REPORT INFORMATION
  Report Type: Spontaneous
  Country: DE (occurrence: DE)
  Receive Date: 20190722
  Receipt Date: 20190722
  Transmission Date: 20191004
  Serious: Yes (Death, Other)
  Sender: FDA-Public Use
  Company Number: DE-PFIZER INC-2019309872

PATIENT
  Sex: Female

DRUGS (5)
  1. ESLICARBAZEPINE [Concomitant]
     Active Substance: ESLICARBAZEPINE
     Indication: SEIZURE
     Dosage: UNK
  2. VALPROATE [Concomitant]
     Active Substance: VALPROIC ACID
     Dosage: UNK
  3. LEVETIRACETAM. [Suspect]
     Active Substance: LEVETIRACETAM
     Dosage: UNK
  4. BRIVIACT [Suspect]
     Active Substance: BRIVARACETAM
     Indication: SEIZURE
     Dosage: UNK
  5. PERAMPANEL [Concomitant]
     Active Substance: PERAMPANEL
     Indication: SEIZURE

REACTIONS (3)
  - Hallucination [Unknown]
  - Condition aggravated [Fatal]
  - Seizure [Fatal]
